FAERS Safety Report 18615177 (Version 1)
Quarter: 2020Q4

REPORT INFORMATION
  Report Type: Spontaneous
  Country: PT (occurrence: PT)
  Receive Date: 20201214
  Receipt Date: 20201214
  Transmission Date: 20210114
  Serious: Yes (Hospitalization, Other)
  Sender: FDA-Public Use
  Company Number: PT-TAKEDA-2020TUS055986

PATIENT
  Age: 60 Year
  Sex: Female

DRUGS (1)
  1. MESALAZINE [Suspect]
     Active Substance: MESALAMINE
     Indication: COLITIS ULCERATIVE
     Dosage: 3 G, DAILY
     Route: 065

REACTIONS (1)
  - Pulmonary toxicity [Recovered/Resolved]
